FAERS Safety Report 11176438 (Version 1)
Quarter: 2015Q2

REPORT INFORMATION
  Report Type: Report from Study
  Country: US (occurrence: US)
  Receive Date: 20150610
  Receipt Date: 20150610
  Transmission Date: 20150821
  Serious: Yes (Other)
  Sender: FDA-Public Use
  Company Number: US-ROCHE-1590082

PATIENT
  Age: 70 Year

DRUGS (3)
  1. PACLITAXEL. [Suspect]
     Active Substance: PACLITAXEL
     Indication: CERVIX CARCINOMA
     Dosage: OVER 3 HOURS ON DAY 1
     Route: 042
  2. BEVACIZUMAB [Suspect]
     Active Substance: BEVACIZUMAB
     Indication: CERVIX CARCINOMA
     Dosage: OVER 30-90 MIN ON DAY 1,
     Route: 042
     Dates: start: 20100225, end: 20100827
  3. CISPLATIN. [Suspect]
     Active Substance: CISPLATIN
     Indication: CERVIX CARCINOMA
     Dosage: ON DAY 1 OF THE CYCLE
     Route: 065

REACTIONS (1)
  - Haemorrhoids [Unknown]

NARRATIVE: CASE EVENT DATE: 20101001
